FAERS Safety Report 4377623-1 (Version None)
Quarter: 2004Q2

REPORT INFORMATION
  Report Type: 
  Country: None (occurrence: None)
  Receive Date: 20040615
  Receipt Date: 20040602
  Transmission Date: 20050107
  Serious: Yes (Hospitalization)
  Sender: FDA-Public Use
  Company Number: AU-GLAXOSMITHKLINE-B0335295A

PATIENT
  Age: 26 Year
  Sex: Female

DRUGS (7)
  1. LAMICTAL [Suspect]
  2. ACETAMINOPHEN W/ CODEINE [Suspect]
     Indication: PAIN
     Dosage: 2G PER DAY
  3. CLONAZEPAM [Concomitant]
  4. WARFARIN SODIUM [Concomitant]
  5. MONOFEME 28 [Concomitant]
     Indication: CONTRACEPTION
  6. ZONISAMIDE [Concomitant]
  7. DIAZEPAM [Concomitant]

REACTIONS (5)
  - CLONIC CONVULSION [None]
  - CONDITION AGGRAVATED [None]
  - DRUG INTERACTION [None]
  - NERVOUSNESS [None]
  - TONIC CONVULSION [None]
